FAERS Safety Report 20641386 (Version 1)
Quarter: 2022Q1

REPORT INFORMATION
  Report Type: Spontaneous
  Country: None (occurrence: US)
  Receive Date: 20220328
  Receipt Date: 20220328
  Transmission Date: 20220423
  Serious: No
  Sender: FDA-Public Use
  Company Number: US-Ajanta Pharma USA Inc.-2127150

PATIENT
  Age: 54 Year
  Sex: Female

DRUGS (22)
  1. DULOXETINE [Suspect]
     Active Substance: DULOXETINE
     Route: 048
  2. POTASSIUM [Concomitant]
     Active Substance: POTASSIUM
  3. LASIX [Concomitant]
     Active Substance: FUROSEMIDE
  4. METOPROLOL [Concomitant]
     Active Substance: METOPROLOL
  5. DESIPRAMINE HYDROCHLORIDE [Concomitant]
     Active Substance: DESIPRAMINE HYDROCHLORIDE
  6. PREGABALIN [Concomitant]
     Active Substance: PREGABALIN
  7. OMEPRAZOLE [Concomitant]
     Active Substance: OMEPRAZOLE
  8. INSULIN NOS [Concomitant]
     Active Substance: INSULIN NOS
  9. SEROQUEL [Concomitant]
     Active Substance: QUETIAPINE FUMARATE
  10. ALLOPURINOL [Concomitant]
     Active Substance: ALLOPURINOL
  11. BUSPAR [Concomitant]
     Active Substance: BUSPIRONE HYDROCHLORIDE
  12. DULERA [Concomitant]
     Active Substance: FORMOTEROL FUMARATE DIHYDRATE\MOMETASONE FUROATE
  13. SEROQUEL [Concomitant]
     Active Substance: QUETIAPINE FUMARATE
  14. LIPITOR [Concomitant]
     Active Substance: ATORVASTATIN CALCIUM
  15. FLEXERIL [Concomitant]
     Active Substance: CYCLOBENZAPRINE HYDROCHLORIDE
  16. ANTIVERT [Concomitant]
     Active Substance: MECLIZINE HYDROCHLORIDE
  17. ZOFRAN [Concomitant]
     Active Substance: ONDANSETRON HYDROCHLORIDE
  18. REQUIP [Concomitant]
     Active Substance: ROPINIROLE HYDROCHLORIDE
  19. ALDACTONE [Concomitant]
     Active Substance: SPIRONOLACTONE
  20. IMITREX [Concomitant]
     Active Substance: SUMATRIPTAN SUCCINATE
  21. TOPAMAX [Concomitant]
     Active Substance: TOPIRAMATE
  22. TRAMADOL [Concomitant]
     Active Substance: TRAMADOL

REACTIONS (2)
  - Product odour abnormal [Not Recovered/Not Resolved]
  - Product taste abnormal [Not Recovered/Not Resolved]

NARRATIVE: CASE EVENT DATE: 20220126
